FAERS Safety Report 19408139 (Version 1)
Quarter: 2021Q2

REPORT INFORMATION
  Report Type: Spontaneous
  Country: KR (occurrence: KR)
  Receive Date: 20210611
  Receipt Date: 20210611
  Transmission Date: 20210717
  Serious: Yes (Other)
  Sender: FDA-Public Use
  Company Number: KR-PFIZER INC-2021645965

PATIENT
  Age: 45 Year
  Sex: Female

DRUGS (1)
  1. ZELDOX [Suspect]
     Active Substance: ZIPRASIDONE
     Dosage: 20 MG, 2X/DAY
     Route: 048

REACTIONS (2)
  - Suicidal ideation [Unknown]
  - Negative thoughts [Unknown]
